FAERS Safety Report 19888638 (Version 1)
Quarter: 2021Q3

REPORT INFORMATION
  Report Type: Spontaneous
  Country: US (occurrence: US)
  Receive Date: 20210927
  Receipt Date: 20210927
  Transmission Date: 20211014
  Serious: No
  Sender: FDA-Public Use
  Company Number: US-ABBVIE-21K-163-4000035-00

PATIENT
  Sex: Female
  Weight: 64.92 kg

DRUGS (19)
  1. ESTRADIOL. [Concomitant]
     Active Substance: ESTRADIOL
     Indication: VULVOVAGINAL DRYNESS
  2. PROAIR RESPICLICK [Concomitant]
     Active Substance: ALBUTEROL SULFATE
     Indication: ASTHMA
  3. AMOXICILLIN. [Concomitant]
     Active Substance: AMOXICILLIN
     Indication: DENTAL OPERATION
  4. ESTRADIOL. [Concomitant]
     Active Substance: ESTRADIOL
     Indication: VULVOVAGINAL DRYNESS
  5. GABAPENTIN. [Concomitant]
     Active Substance: GABAPENTIN
     Indication: NEURALGIA
  6. SKYRIZI [Suspect]
     Active Substance: RISANKIZUMAB-RZAA
     Indication: PSORIASIS
     Route: 058
     Dates: start: 2021
  7. ACICLOVIR [Concomitant]
     Active Substance: ACYCLOVIR
     Indication: ORAL HERPES
  8. CLOBETASOL PROPIONATE. [Concomitant]
     Active Substance: CLOBETASOL PROPIONATE
     Indication: PSORIASIS
  9. HUMIRA [Suspect]
     Active Substance: ADALIMUMAB
     Indication: PSORIASIS
     Route: 058
  10. PHENTERMINE HCL [Concomitant]
     Active Substance: PHENTERMINE HYDROCHLORIDE
     Indication: ASTHENIA
  11. KLONOPIN [Concomitant]
     Active Substance: CLONAZEPAM
     Indication: DEPRESSION
  12. LAMICTAL [Concomitant]
     Active Substance: LAMOTRIGINE
     Indication: BIPOLAR DISORDER
  13. EUCRISA [Concomitant]
     Active Substance: CRISABOROLE
     Indication: ECZEMA
  14. DICLOFENAC POTASSIUM. [Concomitant]
     Active Substance: DICLOFENAC POTASSIUM
     Indication: INFLAMMATION
  15. ZOLOFT [Concomitant]
     Active Substance: SERTRALINE HYDROCHLORIDE
     Indication: ANXIETY
  16. KLONOPIN [Concomitant]
     Active Substance: CLONAZEPAM
     Indication: ANXIETY
  17. LAMICTAL [Concomitant]
     Active Substance: LAMOTRIGINE
     Indication: ANXIETY
  18. EUCRISA [Concomitant]
     Active Substance: CRISABOROLE
     Indication: DERMATITIS ATOPIC
  19. VENTOLIN [Concomitant]
     Active Substance: ALBUTEROL SULFATE
     Indication: ASTHMA

REACTIONS (1)
  - Sciatica [Not Recovered/Not Resolved]

NARRATIVE: CASE EVENT DATE: 2021
